FAERS Safety Report 11517873 (Version 3)
Quarter: 2021Q1

REPORT INFORMATION
  Report Type: Spontaneous
  Country: GB (occurrence: GB)
  Receive Date: 20150917
  Receipt Date: 20210317
  Transmission Date: 20210419
  Serious: Yes (Life-Threatening, Hospitalization)
  Sender: FDA-Public Use
  Company Number: GB-FERRINGPH-2015FE03065

PATIENT
  Age: 62 Year
  Sex: Male

DRUGS (11)
  1. PARACETAMOL [Concomitant]
     Active Substance: ACETAMINOPHEN
     Indication: PRODUCT USED FOR UNKNOWN INDICATION
     Dosage: 1 G AS NEEDED
  2. FIRMAGON [Suspect]
     Active Substance: DEGARELIX ACETATE
     Indication: PROSTATE CANCER
     Dosage: 240 MG
     Route: 065
     Dates: start: 20150703, end: 20150814
  3. OMEPRAZOLE. [Concomitant]
     Active Substance: OMEPRAZOLE
     Indication: PRODUCT USED FOR UNKNOWN INDICATION
     Dosage: 40 MG, DAILY
  4. DEXAMETHASONE. [Suspect]
     Active Substance: DEXAMETHASONE
     Indication: PROSTATE CANCER
     Dosage: 6 MG, 2 TIMES DAILY
     Route: 065
  5. MST                                /00021210/ [Concomitant]
     Active Substance: MAGNESIUM SALICYLATE
     Indication: PRODUCT USED FOR UNKNOWN INDICATION
     Dosage: 15 MG, 2 TIMES DAILY
  6. METOCLOPRAMIDE. [Concomitant]
     Active Substance: METOCLOPRAMIDE
     Indication: PRODUCT USED FOR UNKNOWN INDICATION
     Dosage: 10 MG, 3 TIMES DAILY
  7. CORTICOSTEROIDS [Concomitant]
     Active Substance: CORTICOSTEROID NOS
     Indication: PRODUCT USED FOR UNKNOWN INDICATION
     Dosage: UNK
  8. DEXAMETHASONE. [Suspect]
     Active Substance: DEXAMETHASONE
     Dosage: 4 MG
     Route: 065
  9. DEXAMETHASONE. [Suspect]
     Active Substance: DEXAMETHASONE
     Dosage: 2 MG, DAILY
     Route: 065
     Dates: start: 20150827
  10. MORPHINE [Concomitant]
     Active Substance: MORPHINE
     Indication: PRODUCT USED FOR UNKNOWN INDICATION
     Dosage: 10 MG AS NEEDED
  11. IBUPROFEN. [Concomitant]
     Active Substance: IBUPROFEN
     Indication: PRODUCT USED FOR UNKNOWN INDICATION
     Dosage: 400 MG, 2 TIMES DAILY

REACTIONS (10)
  - Agitation [Recovered/Resolved]
  - Anxiety [Recovered/Resolved]
  - Intentional self-injury [Recovered/Resolved]
  - Suicidal ideation [Recovered/Resolved]
  - Insomnia [Recovered/Resolved]
  - Delusion [Recovered/Resolved]
  - Accidental overdose [Recovered/Resolved]
  - Psychotic disorder [Recovered/Resolved]
  - Panic attack [Recovered/Resolved]
  - Hallucination, visual [Recovered/Resolved]

NARRATIVE: CASE EVENT DATE: 20150805
